FAERS Safety Report 8188429-X (Version None)
Quarter: 2012Q1

REPORT INFORMATION
  Report Type: 
  Country: None (occurrence: None)
  Receive Date: 20120306
  Receipt Date: 20120228
  Transmission Date: 20120608
  Serious: Yes (Hospitalization)
  Sender: FDA-Public Use
  Company Number: PHEH2012US003810

PATIENT
  Sex: Female
  Weight: 41.723 kg

DRUGS (7)
  1. MUCINEX [Concomitant]
  2. NASCOBAL [Concomitant]
  3. ZANAFLEX [Concomitant]
  4. EFFEXOR [Concomitant]
  5. CYPROHEPTADINE HCL [Concomitant]
  6. GILENYA [Suspect]
     Indication: MULTIPLE SCLEROSIS
     Dosage: 0.5 MG, QD
     Route: 048
     Dates: start: 20110706
  7. TRAZODONE HCL [Concomitant]

REACTIONS (30)
  - CHRONIC OBSTRUCTIVE PULMONARY DISEASE [None]
  - WHEEZING [None]
  - DECREASED APPETITE [None]
  - HAEMATOCRIT DECREASED [None]
  - LEUKOPENIA [None]
  - WEIGHT DECREASED [None]
  - PRODUCTIVE COUGH [None]
  - LUNG HYPERINFLATION [None]
  - LUNG NEOPLASM [None]
  - MALAISE [None]
  - ASPARTATE AMINOTRANSFERASE INCREASED [None]
  - BRONCHIAL WALL THICKENING [None]
  - RIGHT ATRIAL DILATATION [None]
  - HYPOAESTHESIA [None]
  - BLOOD GLUCOSE INCREASED [None]
  - RED BLOOD CELL COUNT DECREASED [None]
  - RHONCHI [None]
  - PNEUMONIA [None]
  - PARAESTHESIA [None]
  - BRONCHOSPASM [None]
  - RESPIRATORY DISTRESS [None]
  - NEUTROPENIA [None]
  - DYSPNOEA [None]
  - BLOOD UREA NITROGEN/CREATININE RATIO DECREASED [None]
  - LYMPHOPENIA [None]
  - CHEST DISCOMFORT [None]
  - PYREXIA [None]
  - TREMOR [None]
  - HYPERTENSION [None]
  - ALANINE AMINOTRANSFERASE INCREASED [None]
